FAERS Safety Report 13473914 (Version 3)
Quarter: 2017Q2

REPORT INFORMATION
  Report Type: Spontaneous
  Country: US (occurrence: US)
  Receive Date: 20170424
  Receipt Date: 20170518
  Transmission Date: 20170830
  Serious: Yes (Other)
  Sender: FDA-Public Use
  Company Number: US-TARO-2017TAR00283

PATIENT
  Age: 61 Year
  Sex: Male
  Weight: 136.5 kg

DRUGS (6)
  1. FLUOROURACIL TOPICAL CREAM USP 5% [Suspect]
     Active Substance: FLUOROURACIL
     Dosage: UNK UNK, 2X/DAY
     Route: 061
     Dates: start: 20170401, end: 20170402
  2. UNSPECIFIED INSULIN [Concomitant]
     Active Substance: INSULIN NOS
  3. SIMVASTATIN. [Concomitant]
     Active Substance: SIMVASTATIN
  4. METFORMIN [Concomitant]
     Active Substance: METFORMIN HYDROCHLORIDE
  5. GLIPIZIDE. [Concomitant]
     Active Substance: GLIPIZIDE
  6. LOW DOSE ASPIRIN [Concomitant]
     Active Substance: ASPIRIN

REACTIONS (11)
  - Application site ulcer [Not Recovered/Not Resolved]
  - Application site erosion [Not Recovered/Not Resolved]
  - Application site haemorrhage [Not Recovered/Not Resolved]
  - Purulent discharge [Unknown]
  - Platelet count decreased [Unknown]
  - Application site erythema [Unknown]
  - Application site irritation [Unknown]
  - Expired product administered [Recovered/Resolved]
  - Application site pain [Not Recovered/Not Resolved]
  - Insomnia [Not Recovered/Not Resolved]
  - Wrong drug administered [Recovered/Resolved]

NARRATIVE: CASE EVENT DATE: 2017
